FAERS Safety Report 10221974 (Version 1)
Quarter: 2014Q2

REPORT INFORMATION
  Report Type: Spontaneous
  Country: IT (occurrence: IT)
  Receive Date: 20140606
  Receipt Date: 20140606
  Transmission Date: 20141212
  Serious: Yes (Hospitalization)
  Sender: FDA-Public Use
  Company Number: IT-DSJP-DSE-2014-110502

PATIENT
  Sex: 0

DRUGS (2)
  1. PLAUNAZIDE [Suspect]
     Indication: HYPERTENSION
     Dosage: 20/25 MG, QD
     Route: 048
     Dates: start: 20130701, end: 20140514
  2. LERCAPREL [Suspect]
     Indication: HYPERTENSION
     Dosage: 20/10 MG, QD
     Route: 048
     Dates: start: 20130701, end: 20140514

REACTIONS (2)
  - Hypertension [Unknown]
  - Drug ineffective [Unknown]
